FAERS Safety Report 15784262 (Version 1)
Quarter: 2019Q1

REPORT INFORMATION
  Report Type: Report from Study
  Country: MX (occurrence: MX)
  Receive Date: 20190103
  Receipt Date: 20190103
  Transmission Date: 20190417
  Serious: Yes (Other)
  Sender: FDA-Public Use
  Company Number: MX-ORION CORPORATION ORION PHARMA-ENTC2019-0001

PATIENT
  Sex: Female

DRUGS (1)
  1. STALEVO [Suspect]
     Active Substance: CARBIDOPA\ENTACAPONE\LEVODOPA
     Indication: EPILEPSY
     Dosage: STRENGTH: LEVODOPA 12.5 MG/CARBIDOPA 50 MG/ENTACAPONE 200 MG
     Route: 048

REACTIONS (6)
  - Wrong technique in product usage process [Not Recovered/Not Resolved]
  - Epilepsy [Unknown]
  - Dizziness [Not Recovered/Not Resolved]
  - Product prescribing error [Not Recovered/Not Resolved]
  - Chills [Not Recovered/Not Resolved]
  - Product use in unapproved indication [Unknown]
